FAERS Safety Report 5065386-6 (Version None)
Quarter: 2006Q3

REPORT INFORMATION
  Report Type: 
  Country: None (occurrence: None)
  Receive Date: 20060725
  Receipt Date: 20060713
  Transmission Date: 20061208
  Serious: Yes (Other)
  Sender: FDA-Public Use
  Company Number: 2006087250

PATIENT
  Sex: Female

DRUGS (1)
  1. PROVERA [Suspect]
     Indication: METRORRHAGIA
     Dosage: 30 MG (10 MG, TID) ORAL
     Route: 048

REACTIONS (1)
  - MYOCARDIAL INFARCTION [None]
